FAERS Safety Report 8264609-X (Version None)
Quarter: 2012Q2

REPORT INFORMATION
  Report Type: 
  Country: None (occurrence: None)
  Receive Date: 20120403
  Receipt Date: 20120328
  Transmission Date: 20120825
  Serious: Yes (Hospitalization, Disabling, Other)
  Sender: FDA-Public Use
  Company Number: 2011MA000145

PATIENT
  Sex: Female
  Weight: 108.8633 kg

DRUGS (39)
  1. ACETAMINOPHEN W/ CODEINE TAB [Concomitant]
  2. COLACE [Concomitant]
  3. COMBIVENT [Concomitant]
  4. METFORMIN HCL [Concomitant]
  5. SPIRIVA [Concomitant]
  6. ZYMAR [Concomitant]
  7. ALBUTEROL [Concomitant]
  8. CYCLOPENTOLATE HCL [Concomitant]
  9. DIAMOX [Concomitant]
  10. FUROSEMIDE [Concomitant]
  11. HYOSCYAMINE [Concomitant]
  12. METOCLOPRAMIDE [Suspect]
     Indication: GASTROOESOPHAGEAL REFLUX DISEASE
     Dosage: QID;PO
     Route: 048
     Dates: start: 20060420, end: 20081201
  13. ADVAIR DISKUS 100/50 [Concomitant]
  14. FLUTICASONE FUROATE [Concomitant]
  15. INSULIN [Concomitant]
  16. PREDNISONE TAB [Concomitant]
  17. PROCHLORPERAZINE [Concomitant]
  18. SIMVASTATIN [Concomitant]
  19. LISINOPRIL [Concomitant]
  20. LOVASTATIN [Concomitant]
  21. OFLOXACIN [Concomitant]
  22. POTASSIUM [Concomitant]
  23. PREDNISOLONE [Concomitant]
  24. AMLODIPINE [Concomitant]
  25. AVELOX [Concomitant]
  26. HYDROCODONE BITARTRATE AND ACETAMINOPHEN [Concomitant]
  27. LEVSIN PB [Concomitant]
  28. VIGAMOX [Concomitant]
  29. FAMOTIDINE [Concomitant]
  30. TRIAMTERENE AND HYDROCHLOROTHIAZIDE [Concomitant]
  31. ASPIRIN [Concomitant]
  32. NOVOLIN 70/30 [Concomitant]
  33. MORPHINE [Concomitant]
  34. NIFEDIPINE [Concomitant]
  35. SYMBICORT [Concomitant]
  36. ACULAR LS [Concomitant]
  37. GABAPENTIN [Concomitant]
  38. LASIX [Concomitant]
  39. OXYGEN [Concomitant]

REACTIONS (56)
  - ECONOMIC PROBLEM [None]
  - BACK PAIN [None]
  - TEMPOROMANDIBULAR JOINT SYNDROME [None]
  - CARDIAC VALVE VEGETATION [None]
  - DYSARTHRIA [None]
  - AREFLEXIA [None]
  - CHEST DISCOMFORT [None]
  - LEFT VENTRICULAR HYPERTROPHY [None]
  - SPONDYLOLISTHESIS [None]
  - INTERVERTEBRAL DISC DEGENERATION [None]
  - PROTEIN URINE PRESENT [None]
  - BREAST CYST EXCISION [None]
  - ANXIETY [None]
  - OEDEMA [None]
  - SLEEP APNOEA SYNDROME [None]
  - BLOOD GLUCOSE INCREASED [None]
  - ENCEPHALITIS [None]
  - DYSPNOEA [None]
  - URINARY TRACT INFECTION [None]
  - CARDIAC FAILURE CONGESTIVE [None]
  - NAUSEA [None]
  - RETINAL ARTERY OCCLUSION [None]
  - SWOLLEN TONGUE [None]
  - DIVERTICULUM [None]
  - FLANK PAIN [None]
  - PAIN [None]
  - DIABETES MELLITUS [None]
  - DYSKINESIA [None]
  - HEADACHE [None]
  - RESPIRATORY FAILURE [None]
  - TARDIVE DYSKINESIA [None]
  - EXTRAPYRAMIDAL DISORDER [None]
  - EMOTIONAL DISORDER [None]
  - CHRONIC OBSTRUCTIVE PULMONARY DISEASE [None]
  - HYSTERECTOMY [None]
  - CHOLECYSTECTOMY [None]
  - INTERVERTEBRAL DISC PROTRUSION [None]
  - CATARACT OPERATION [None]
  - FEELING ABNORMAL [None]
  - CARPAL TUNNEL SYNDROME [None]
  - CATARACT [None]
  - PRODUCTIVE COUGH [None]
  - COLONIC POLYP [None]
  - HYPERTENSION [None]
  - KNEE ARTHROPLASTY [None]
  - HYPOREFLEXIA [None]
  - WHEEZING [None]
  - TYPE 2 DIABETES MELLITUS [None]
  - DIVERTICULITIS [None]
  - GASTROOESOPHAGEAL REFLUX DISEASE [None]
  - COUGH [None]
  - OBESITY [None]
  - FACIAL PARESIS [None]
  - ASTHMA [None]
  - LOWER GASTROINTESTINAL HAEMORRHAGE [None]
  - INTERVERTEBRAL DISC SPACE NARROWING [None]
